FAERS Safety Report 24670424 (Version 2)
Quarter: 2024Q4

REPORT INFORMATION
  Report Type: Spontaneous
  Country: FR (occurrence: FR)
  Receive Date: 20241127
  Receipt Date: 20241206
  Transmission Date: 20250115
  Serious: Yes (Death, Other)
  Sender: SANOFI AVENTIS
  Company Number: None

PATIENT
  Age: 47 Year
  Sex: Male

DRUGS (6)
  1. ANTI-THYMOCYTE GLOBULIN (RABBIT) NOS [Suspect]
     Active Substance: LAPINE T-LYMPHOCYTE IMMUNE GLOBULIN
     Indication: Renal transplant
     Dosage: UNK
  2. PREDNISONE [Suspect]
     Active Substance: PREDNISONE
     Indication: Renal transplant
     Dosage: UNK
  3. PREDNISONE [Suspect]
     Active Substance: PREDNISONE
     Indication: Plasma cell myeloma
     Dosage: UNK, IST TREATMENT
  4. PREDNISONE [Suspect]
     Active Substance: PREDNISONE
     Dosage: UNK, 2ND TREATMENT
  5. AZATHIOPRINE [Suspect]
     Active Substance: AZATHIOPRINE
     Indication: Renal transplant
     Dosage: UNK
  6. CYCLOSPORINE [Suspect]
     Active Substance: CYCLOSPORINE
     Indication: Renal transplant
     Dosage: UNK

REACTIONS (4)
  - Plasma cell myeloma [Fatal]
  - Plasmacytosis [Fatal]
  - Kidney transplant rejection [Fatal]
  - Plasmacytoma [Fatal]

NARRATIVE: CASE EVENT DATE: 20090101
